FAERS Safety Report 12143138 (Version 2)
Quarter: 2016Q2

REPORT INFORMATION
  Report Type: Report from Study
  Country: JP (occurrence: JP)
  Receive Date: 20160303
  Receipt Date: 20160519
  Transmission Date: 20160815
  Serious: No
  Sender: FDA-Public Use
  Company Number: JP-FRI-1000083066

PATIENT
  Age: 45 Year
  Sex: Male
  Weight: 69.5 kg

DRUGS (19)
  1. BIFONAZOLE [Concomitant]
     Active Substance: BIFONAZOLE
     Indication: TINEA PEDIS
  2. LORAZEPAM. [Concomitant]
     Active Substance: LORAZEPAM
     Indication: AGITATION
     Dates: end: 20130224
  3. MYDRIN P [Concomitant]
     Active Substance: PHENYLEPHRINE HYDROCHLORIDE\TROPICAMIDE
     Dates: start: 20130517, end: 20130517
  4. ARIPIPRAZOLE. [Concomitant]
     Active Substance: ARIPIPRAZOLE
     Indication: SCHIZOPHRENIA
     Dates: start: 20130225, end: 20130322
  5. RAMELTEON [Concomitant]
     Active Substance: RAMELTEON
     Indication: INSOMNIA
     Dates: start: 20130401, end: 20130412
  6. BIPERIDEN [Concomitant]
     Active Substance: BIPERIDEN
     Indication: AKATHISIA
     Dates: start: 20130411, end: 20130413
  7. SODIUM PICOSULFATE [Concomitant]
     Active Substance: SODIUM PICOSULFATE
     Dates: start: 20130307
  8. CARIPRAZINE [Suspect]
     Active Substance: CARIPRAZINE
     Indication: SCHIZOPHRENIA
     Dates: start: 20130213, end: 20130222
  9. OLANZAPINE. [Concomitant]
     Active Substance: OLANZAPINE
     Dates: start: 20130304, end: 20130412
  10. HALOPERIDOL. [Concomitant]
     Active Substance: HALOPERIDOL
     Indication: SCHIZOPHRENIA
     Dates: start: 20130206
  11. PALIPERIDONE. [Concomitant]
     Active Substance: PALIPERIDONE
     Dates: start: 20130223, end: 20130224
  12. TRIAZOLAM. [Concomitant]
     Active Substance: TRIAZOLAM
     Indication: INSOMNIA
  13. PALIPERIDONE. [Concomitant]
     Active Substance: PALIPERIDONE
     Indication: SCHIZOPHRENIA
     Dates: end: 20130207
  14. ARIPIPRAZOLE. [Concomitant]
     Active Substance: ARIPIPRAZOLE
     Dates: start: 20130413, end: 20130413
  15. OLANZAPINE. [Concomitant]
     Active Substance: OLANZAPINE
     Dates: start: 20130223, end: 20130224
  16. OLANZAPINE. [Concomitant]
     Active Substance: OLANZAPINE
     Indication: SCHIZOPHRENIA
     Dates: start: 20130206, end: 20130206
  17. QUETIAPINE. [Concomitant]
     Active Substance: QUETIAPINE
     Indication: SCHIZOPHRENIA
     Dates: start: 20130226, end: 20130308
  18. MYDRIN P [Concomitant]
     Active Substance: PHENYLEPHRINE HYDROCHLORIDE\TROPICAMIDE
     Indication: MYDRIASIS
     Dates: start: 20130222, end: 20130222
  19. CHLORPROMAZINE HYDROCHLORIDE. [Concomitant]
     Active Substance: CHLORPROMAZINE HYDROCHLORIDE
     Indication: AGITATION
     Dates: start: 20130225, end: 20130503

REACTIONS (1)
  - Cataract traumatic [Not Recovered/Not Resolved]

NARRATIVE: CASE EVENT DATE: 20130222
